FAERS Safety Report 5823350-0 (Version None)
Quarter: 2008Q3

REPORT INFORMATION
  Report Type: 
  Country: None (occurrence: None)
  Receive Date: 20080725
  Receipt Date: 20080717
  Transmission Date: 20090109
  Serious: Yes (Other)
  Sender: FDA-Public Use
  Company Number: GB-PURDUE-GBR_2008_0004006

PATIENT
  Age: 13 Year
  Sex: Male

DRUGS (6)
  1. UNIPHYLLIN CONTINUS TABLETS 200 MG [Suspect]
     Indication: ASTHMA
     Dosage: 200 MG, BID
     Route: 048
     Dates: start: 20070101, end: 20080428
  2. CETIRIZINE HCL [Concomitant]
     Indication: RHINITIS ALLERGIC
     Dosage: 10 MG, DAILY
     Route: 048
     Dates: start: 20070503
  3. ALBUTEROL [Concomitant]
     Indication: ASTHMA
     Dosage: 100-400 MCG, PRN
     Route: 055
     Dates: start: 19991201
  4. SYMBICORT [Concomitant]
     Indication: ASTHMA
     Dosage: 1 PUFF, BID
     Route: 055
     Dates: start: 20080103
  5. MONTELUKAST SODIUM [Concomitant]
     Dosage: 5 MG, DAILY
     Route: 048
  6. MIGRALEVE [Concomitant]
     Indication: MIGRAINE
     Dosage: UNK, PRN
     Route: 048
     Dates: start: 20050317

REACTIONS (1)
  - WITHDRAWAL SYNDROME [None]
